FAERS Safety Report 6305389-4 (Version None)
Quarter: 2009Q3

REPORT INFORMATION
  Report Type: 
  Country: None (occurrence: None)
  Receive Date: 20090811
  Receipt Date: 20090728
  Transmission Date: 20100115
  Serious: Yes (Other)
  Sender: FDA-Public Use
  Company Number: GB-MYLANLABS-2009S1013287

PATIENT
  Age: 34 Year
  Sex: Female

DRUGS (11)
  1. BUPIVACAINE [Suspect]
     Indication: EPIDURAL ANAESTHESIA
     Route: 008
  2. BUPIVACAINE [Suspect]
     Route: 008
  3. BUPIVACAINE [Suspect]
     Dosage: 12ML OF 0.1% BUPIVACAINE WITH FENTANYL 2 MCG/ML (12ML/HOUR)
     Route: 008
  4. BUPIVACAINE [Suspect]
     Dosage: 12ML OF 0.1% BUPIVACAINE WITH FENTANYL 2 MCG/ML (12ML/HOUR)
     Route: 008
  5. BUPIVACAINE [Suspect]
     Dosage: 18ML OF 0.5% BUPIVACAINE WITH FENTANYL 100MCG
     Route: 008
  6. BUPIVACAINE [Suspect]
     Dosage: 18ML OF 0.5% BUPIVACAINE WITH FENTANYL 100MCG
     Route: 008
  7. FENTANYL [Suspect]
     Indication: EPIDURAL ANAESTHESIA
     Dosage: 12ML OF 0.1% BUPIVACAINE WITH FENTANYL 2 MCG/ML (12ML/HOUR)
     Route: 008
  8. FENTANYL [Suspect]
     Dosage: 12ML OF 0.1% BUPIVACAINE WITH FENTANYL 2 MCG/ML (12ML/HOUR)
     Route: 008
  9. FENTANYL [Suspect]
     Dosage: 18ML OF 0.5% BUPIVACAINE WITH FENTANYL 100MCG
     Route: 008
  10. FENTANYL [Suspect]
     Dosage: 18ML OF 0.5% BUPIVACAINE WITH FENTANYL 100MCG
     Route: 008
  11. OXYTOCIN [Concomitant]

REACTIONS (6)
  - DYSPNOEA [None]
  - HORNER'S SYNDROME [None]
  - HYPOGLOSSAL NERVE PARESIS [None]
  - NASAL CONGESTION [None]
  - NAUSEA [None]
  - TRIGEMINAL NERVE PARESIS [None]
